FAERS Safety Report 23639548 (Version 2)
Quarter: 2024Q2

REPORT INFORMATION
  Report Type: Report from Study
  Country: US (occurrence: US)
  Receive Date: 20240316
  Receipt Date: 20240405
  Transmission Date: 20240716
  Serious: Yes (Other)
  Sender: FDA-Public Use
  Company Number: US-TEVA-VS-3167948

PATIENT

DRUGS (1)
  1. ARSENIC TRIOXIDE [Suspect]
     Active Substance: ARSENIC TRIOXIDE
     Indication: Acute promyelocytic leukaemia
     Dosage: IV?INFUSIONS, DAILY INFUSIONS 5 DAYS EACH WEEK, 4 WEEKS ON 4 WEEKS OFF FOR 4 CYCLES
     Route: 050

REACTIONS (1)
  - Electrocardiogram QT prolonged [Unknown]
